FAERS Safety Report 15698659 (Version 1)
Quarter: 2018Q4

REPORT INFORMATION
  Report Type: Spontaneous
  Country: US (occurrence: US)
  Receive Date: 20181207
  Receipt Date: 20181207
  Transmission Date: 20190205
  Serious: No
  Sender: FDA-Public Use
  Company Number: US-009507513-1811USA005295

PATIENT

DRUGS (8)
  1. TEMODAR [Suspect]
     Active Substance: TEMOZOLOMIDE
     Indication: NEUROBLASTOMA RECURRENT
  2. CARBOPLATIN (+) ETOPOSIDE (+) IFOSFAMIDE [Concomitant]
     Active Substance: CARBOPLATIN\ETOPOSIDE\IFOSFAMIDE
     Indication: NEUROBLASTOMA RECURRENT
  3. CYCLOPHOSPHAMIDE. [Concomitant]
     Active Substance: CYCLOPHOSPHAMIDE
     Indication: NEUROBLASTOMA RECURRENT
  4. TOPOTECAN [Concomitant]
     Active Substance: TOPOTECAN HYDROCHLORIDE
     Indication: NEUROBLASTOMA RECURRENT
  5. TEMODAR [Suspect]
     Active Substance: TEMOZOLOMIDE
     Indication: SALVAGE THERAPY
  6. CARBOPLATIN (+) ETOPOSIDE (+) IFOSFAMIDE [Concomitant]
     Active Substance: CARBOPLATIN\ETOPOSIDE\IFOSFAMIDE
     Indication: SALVAGE THERAPY
  7. CYCLOPHOSPHAMIDE. [Concomitant]
     Active Substance: CYCLOPHOSPHAMIDE
     Indication: SALVAGE THERAPY
  8. TOPOTECAN [Concomitant]
     Active Substance: TOPOTECAN HYDROCHLORIDE
     Indication: SALVAGE THERAPY

REACTIONS (2)
  - Off label use [Unknown]
  - Product use issue [Unknown]
